FAERS Safety Report 4828993-9 (Version None)
Quarter: 2005Q4

REPORT INFORMATION
  Report Type: 
  Country: None (occurrence: None)
  Receive Date: 20051027
  Receipt Date: 20041230
  Transmission Date: 20060501
  Serious: Yes (Other)
  Sender: FDA-Public Use
  Company Number: HQWYE300621JUL04

PATIENT
  Age: 58 Year
  Sex: Female
  Weight: 72.64 kg

DRUGS (1)
  1. PREMARIN [Suspect]
     Indication: MENOPAUSAL SYMPTOMS
     Route: 048
     Dates: start: 19700101, end: 19960101

REACTIONS (1)
  - BREAST CANCER [None]
